FAERS Safety Report 4322016-6 (Version None)
Quarter: 2004Q1

REPORT INFORMATION
  Report Type: 
  Country: None (occurrence: None)
  Receive Date: 20040323
  Receipt Date: 20040315
  Transmission Date: 20041129
  Serious: Yes (Other)
  Sender: FDA-Public Use
  Company Number: PHFR2004GB01449

PATIENT
  Age: 38 Year
  Sex: Male

DRUGS (1)
  1. TERBINAFINE HCL [Suspect]
     Indication: FUNGAL SKIN INFECTION
     Dosage: 250MG/DAY
     Route: 048
     Dates: start: 20040227, end: 20040305

REACTIONS (2)
  - AFFECTIVE DISORDER [None]
  - TEARFULNESS [None]
